FAERS Safety Report 17922777 (Version 1)
Quarter: 2020Q2

REPORT INFORMATION
  Report Type: Spontaneous
  Country: US (occurrence: US)
  Receive Date: 20200621
  Receipt Date: 20200621
  Transmission Date: 20200714
  Serious: Yes (Hospitalization, Other)
  Sender: FDA-Public Use
  Company Number: None

PATIENT
  Age: 71 Year
  Sex: Male

DRUGS (1)
  1. APIXABAN (APIXABAN 5MG TAB) [Suspect]
     Active Substance: APIXABAN
     Indication: ATRIAL FIBRILLATION
     Dates: start: 20190503, end: 20191101

REACTIONS (4)
  - Dyspnoea [None]
  - Anaemia [None]
  - Acute kidney injury [None]
  - Therapy change [None]

NARRATIVE: CASE EVENT DATE: 20191027
